FAERS Safety Report 5489176-5 (Version None)
Quarter: 2007Q4

REPORT INFORMATION
  Report Type: 
  Country: None (occurrence: None)
  Receive Date: 20071018
  Receipt Date: 20061009
  Transmission Date: 20080405
  Serious: No
  Sender: FDA-Public Use
  Company Number: US-BRISTOL-MYERS SQUIBB COMPANY-13534847

PATIENT
  Sex: Male
  Weight: 56 kg

DRUGS (1)
  1. MEGACE [Suspect]
     Route: 048

REACTIONS (4)
  - DEPRESSION [None]
  - DYSARTHRIA [None]
  - FEELING ABNORMAL [None]
  - INSOMNIA [None]
